FAERS Safety Report 25173287 (Version 1)
Quarter: 2025Q2

REPORT INFORMATION
  Report Type: Report from Study
  Country: US (occurrence: US)
  Receive Date: 20250408
  Receipt Date: 20250408
  Transmission Date: 20250716
  Serious: Yes (Death)
  Sender: BAYER
  Company Number: US-BAYER-2025A046290

PATIENT
  Age: 52 Year
  Sex: Male

DRUGS (1)
  1. ADEMPAS [Suspect]
     Active Substance: RIOCIGUAT
     Indication: Pulmonary hypertension
     Dates: start: 20250206

REACTIONS (1)
  - Death [Fatal]

NARRATIVE: CASE EVENT DATE: 20250217
